FAERS Safety Report 7833466-5 (Version None)
Quarter: 2011Q4

REPORT INFORMATION
  Report Type: 
  Country: None (occurrence: None)
  Receive Date: 20111024
  Receipt Date: 20111015
  Transmission Date: 20120403
  Serious: Yes (Hospitalization)
  Sender: FDA-Public Use
  Company Number: US-ASTELLAS-2011US004828

PATIENT
  Sex: Female

DRUGS (3)
  1. ERLOTINIB HYDROCHLORIDE [Suspect]
     Dosage: 150 MG, UID/QD
     Route: 048
     Dates: start: 20110728, end: 20110905
  2. ERLOTINIB HYDROCHLORIDE [Suspect]
     Dosage: 150 MG, BID
     Route: 048
     Dates: start: 20110906
  3. ERLOTINIB HYDROCHLORIDE [Suspect]
     Indication: LUNG NEOPLASM MALIGNANT
     Dosage: 150 MG, UID/QD
     Route: 048
     Dates: start: 20110111, end: 20110628

REACTIONS (6)
  - OVERDOSE [None]
  - CHEST PAIN [None]
  - CONFUSIONAL STATE [None]
  - PNEUMONIA [None]
  - COUGH [None]
  - RECTAL HAEMORRHAGE [None]
